FAERS Safety Report 7597650-0 (Version None)
Quarter: 2011Q3

REPORT INFORMATION
  Report Type: 
  Country: None (occurrence: None)
  Receive Date: 20110708
  Receipt Date: 20110624
  Transmission Date: 20111222
  Serious: Yes (Hospitalization)
  Sender: FDA-Public Use
  Company Number: DK-GENENTECH-320747

PATIENT
  Sex: Male
  Weight: 59 kg

DRUGS (29)
  1. CYCLOPHOSPHAMIDE [Suspect]
     Dosage: 1380 MG, UNK
     Route: 042
     Dates: start: 20110512
  2. DOXORUBICIN HCL [Suspect]
     Dosage: 92.5 MG, UNK
     Route: 042
     Dates: start: 20110512
  3. VINCRISTINE [Suspect]
     Dosage: 10.44 MG, UNK
     Route: 042
     Dates: start: 20110615
  4. NEUPOGEN [Suspect]
     Indication: DIFFUSE LARGE B-CELL LYMPHOMA
     Dosage: 6 MG, UNK
     Route: 058
     Dates: start: 20110406
  5. NEUPOGEN [Suspect]
     Dosage: 6 MG, UNK
     Route: 058
     Dates: start: 20110616
  6. SULFAMETHOXAZOLE AND TRIMETHOPRIM [Concomitant]
     Indication: PROPHYLAXIS
     Dosage: 1 DF, UNK
     Dates: start: 20110307, end: 20110413
  7. RITUXIMAB [Suspect]
     Dosage: 700 MG, UNK
     Route: 042
     Dates: start: 20110428
  8. RITUXIMAB [Suspect]
     Dosage: 650 MG, UNK
     Route: 042
     Dates: start: 20110615
  9. PREDNISONE [Suspect]
     Dosage: 50 MG, UNK
     Route: 048
     Dates: start: 20110620
  10. DOXORUBICIN HCL [Suspect]
     Dosage: 95 MG, UNK
     Route: 042
     Dates: start: 20110428
  11. RITUXIMAB [Suspect]
     Dosage: 700 MG, UNK
     Route: 042
     Dates: start: 20110512
  12. PREDNISONE [Suspect]
     Dosage: 100 MG, UNK
     Route: 048
     Dates: start: 20110428
  13. PREDNISONE [Suspect]
     Dosage: 25 MG, UNK
     Route: 048
     Dates: start: 20110621
  14. RITUXIMAB [Suspect]
     Indication: DIFFUSE LARGE B-CELL LYMPHOMA
     Dosage: 700 MG, UNK
     Route: 042
     Dates: start: 20110405
  15. PREDNISONE [Suspect]
     Dosage: 100 MG, UNK
     Route: 048
     Dates: start: 20110512
  16. PREDNISONE [Suspect]
     Dosage: 100 MG, UNK
     Route: 048
     Dates: start: 20110615
  17. CYCLOPHOSPHAMIDE [Suspect]
     Dosage: 1300 MG, UNK
     Route: 042
     Dates: start: 20110615
  18. DOXORUBICIN HCL [Suspect]
     Dosage: 87 MG, UNK
     Route: 042
     Dates: start: 20110615
  19. VINCRISTINE [Suspect]
     Indication: DIFFUSE LARGE B-CELL LYMPHOMA
     Dosage: 2 MG, UNK
     Route: 042
     Dates: start: 20110405
  20. NEUPOGEN [Suspect]
     Dosage: 6 MG, UNK
     Route: 058
     Dates: start: 20110429
  21. VINBLASTINE SULFATE [Concomitant]
     Indication: PRODUCT USED FOR UNKNOWN INDICATION
     Dosage: 11.4 MG, UNK
     Route: 042
     Dates: start: 20110428
  22. VINBLASTINE SULFATE [Concomitant]
     Dosage: 11 MG, UNK
     Route: 042
     Dates: start: 20110512
  23. CYCLOPHOSPHAMIDE [Suspect]
     Indication: DIFFUSE LARGE B-CELL LYMPHOMA
     Dosage: 1394 MG, UNK
     Route: 042
     Dates: start: 20110405
  24. DOXORUBICIN HCL [Suspect]
     Indication: DIFFUSE LARGE B-CELL LYMPHOMA
     Dosage: 93 MG, UNK
     Route: 042
     Dates: start: 20110405
  25. CYCLOPHOSPHAMIDE [Suspect]
     Dosage: 1425 MG, UNK
     Route: 042
     Dates: start: 20110428
  26. NEUPOGEN [Suspect]
     Dosage: 6 MG, UNK
     Route: 058
     Dates: start: 20110513
  27. VALACICLOVIR [Concomitant]
     Indication: PROPHYLAXIS
     Dosage: 500 MG, BID
     Route: 048
     Dates: start: 20110307
  28. PREDNISONE [Suspect]
     Indication: DIFFUSE LARGE B-CELL LYMPHOMA
     Dosage: 100 MG, UNK
     Route: 048
     Dates: start: 20110405
  29. VINCRISTINE [Suspect]
     Dosage: 11 MG, UNK
     Route: 042
     Dates: start: 20110512

REACTIONS (4)
  - DYSPNOEA [None]
  - FATIGUE [None]
  - SYNCOPE [None]
  - SEPSIS [None]
